FAERS Safety Report 6544741-9 (Version None)
Quarter: 2010Q1

REPORT INFORMATION
  Report Type: 
  Country: None (occurrence: None)
  Receive Date: 20100121
  Receipt Date: 20100115
  Transmission Date: 20100710
  Serious: Yes (Hospitalization)
  Sender: FDA-Public Use
  Company Number: US-BRISTOL-MYERS SQUIBB COMPANY-14927198

PATIENT
  Age: 61 Year
  Sex: Male
  Weight: 82 kg

DRUGS (16)
  1. CETUXIMAB [Suspect]
     Indication: HEAD AND NECK CANCER
     Route: 042
     Dates: start: 20100104
  2. CISPLATIN [Suspect]
     Indication: HEAD AND NECK CANCER
     Route: 042
     Dates: start: 20091228
  3. RADIATION THERAPY [Suspect]
     Indication: HEAD AND NECK CANCER
  4. NEXIUM [Concomitant]
  5. FENTANYL [Concomitant]
     Route: 061
  6. LACTULOSE [Concomitant]
  7. REGLAN [Concomitant]
     Dosage: 10ML GT 30MIN QAC.
  8. ZOFRAN [Concomitant]
     Dosage: 8 HR PRN
  9. MIRALAX [Concomitant]
  10. ATIVAN [Concomitant]
     Dosage: 1 DF = 0.5MG 1-2 PO/GT 6-8 HRS PRN.
  11. MINOCYCLINE [Concomitant]
     Route: 048
  12. MORPHINE [Concomitant]
     Dosage: Q48HRS PRN.
     Route: 048
  13. AMBIEN [Concomitant]
     Route: 048
  14. NEOSPORIN [Concomitant]
     Route: 061
  15. ROBITUSSIN [Concomitant]
  16. LIDOCAINE HCL VISCOUS [Concomitant]

REACTIONS (1)
  - THROMBOSIS [None]
